FAERS Safety Report 14285917 (Version 2)
Quarter: 2017Q4

REPORT INFORMATION
  Report Type: Report from Study
  Country: BR (occurrence: BR)
  Receive Date: 20171214
  Receipt Date: 20171225
  Transmission Date: 20180321
  Serious: Yes (Hospitalization, Other)
  Sender: FDA-Public Use
  Company Number: PHHY2016BR112703

PATIENT
  Sex: Female
  Weight: 54 kg

DRUGS (6)
  1. EXJADE [Suspect]
     Active Substance: DEFERASIROX
     Indication: SICKLE CELL ANAEMIA
     Dosage: 1500 MG (20 MG/KG), QD
     Route: 048
  2. HYDREA [Concomitant]
     Active Substance: HYDROXYUREA
     Indication: ANAEMIA
     Dosage: 500 MG, 4 TO 3 TABLETS A DAY
     Route: 048
  3. EXJADE [Suspect]
     Active Substance: DEFERASIROX
     Dosage: 2000 MG (4 DISPERSIBLE TABLETS OF 500 MG), QD
     Route: 048
  4. ATENOLOL. [Concomitant]
     Active Substance: ATENOLOL
     Indication: HYPERTENSION
     Dosage: 2 DF, QD
     Route: 048
  5. FOLIC ACID. [Concomitant]
     Active Substance: FOLIC ACID
     Indication: PRODUCT USED FOR UNKNOWN INDICATION
     Dosage: 1 DF, QD
     Route: 048
  6. AMLODIPINE [Concomitant]
     Active Substance: AMLODIPINE BESYLATE
     Indication: HYPERTENSION
     Dosage: 2 DF, UNK
     Route: 048

REACTIONS (11)
  - Nephrolithiasis [Not Recovered/Not Resolved]
  - Gait disturbance [Unknown]
  - Renal disorder [Not Recovered/Not Resolved]
  - Headache [Recovering/Resolving]
  - Laboratory test abnormal [Unknown]
  - Arthralgia [Recovering/Resolving]
  - Sickle cell anaemia with crisis [Recovered/Resolved]
  - Weight decreased [Unknown]
  - Asthenia [Recovering/Resolving]
  - Cardiomegaly [Not Recovered/Not Resolved]
  - Pain [Recovering/Resolving]
